FAERS Safety Report 4657558-7 (Version None)
Quarter: 2005Q2

REPORT INFORMATION
  Report Type: 
  Country: None (occurrence: None)
  Receive Date: 20050405
  Receipt Date: 20050103
  Transmission Date: 20051028
  Serious: Yes (Disabling)
  Sender: FDA-Public Use
  Company Number: 2004110520

PATIENT
  Age: 41 Year
  Sex: Male
  Weight: 115.4404 kg

DRUGS (5)
  1. GEODON [Suspect]
     Indication: BIPOLAR I DISORDER
     Dosage: 160 MG (40 MG, 2 IN 1 D),ORAL
     Route: 048
     Dates: start: 20040520, end: 20040924
  2. LITHIUM CARBONATE [Concomitant]
  3. LAMOTRIGINE [Concomitant]
  4. BUPROPION HYDROCHLORIDE [Concomitant]
  5. METHADONE HCL [Concomitant]

REACTIONS (2)
  - NAUSEA [None]
  - VOMITING [None]
